FAERS Safety Report 21699870 (Version 3)
Quarter: 2024Q2

REPORT INFORMATION
  Report Type: Report from Study
  Country: FR (occurrence: FR)
  Receive Date: 20221208
  Receipt Date: 20240503
  Transmission Date: 20240715
  Serious: Yes (Death, Other)
  Sender: FDA-Public Use
  Company Number: None

PATIENT
  Age: 47 Year
  Sex: Male

DRUGS (8)
  1. ARIPIPRAZOLE [Suspect]
     Active Substance: ARIPIPRAZOLE
     Indication: Substance use
  2. PREGABALIN [Suspect]
     Active Substance: PREGABALIN
     Indication: Substance use
  3. METHYLPHENIDATE [Suspect]
     Active Substance: METHYLPHENIDATE
     Indication: Substance use
  4. OXAZEPAM [Suspect]
     Active Substance: OXAZEPAM
     Indication: Substance use
  5. METHADONE [Suspect]
     Active Substance: METHADONE HYDROCHLORIDE
     Indication: Substance use
  6. TRIMEPRAZINE [Suspect]
     Active Substance: TRIMEPRAZINE
     Indication: Substance use
  7. DRONABINOL [Suspect]
     Active Substance: DRONABINOL
     Indication: Product used for unknown indication
  8. COCAINE [Suspect]
     Active Substance: COCAINE
     Indication: Product used for unknown indication

REACTIONS (7)
  - Regurgitation [Not Recovered/Not Resolved]
  - Pulmonary oedema [Fatal]
  - Tongue biting [Not Recovered/Not Resolved]
  - Substance abuse [Fatal]
  - Intentional product misuse [Fatal]
  - Drug level above therapeutic [Unknown]
  - Toxicity to various agents [Fatal]
